FAERS Safety Report 17265474 (Version 1)
Quarter: 2020Q1

REPORT INFORMATION
  Report Type: Report from Study
  Country: US (occurrence: US)
  Receive Date: 20200114
  Receipt Date: 20200114
  Transmission Date: 20200409
  Serious: No
  Sender: FDA-Public Use
  Company Number: NVSC2020US006911

PATIENT
  Sex: Female

DRUGS (1)
  1. GILENYA [Suspect]
     Active Substance: FINGOLIMOD HYDROCHLORIDE
     Indication: MULTIPLE SCLEROSIS
     Dosage: 0.5 MG, QD
     Route: 048
     Dates: start: 2015

REACTIONS (7)
  - Urinary tract infection [Unknown]
  - Decreased immune responsiveness [Unknown]
  - Hepatic enzyme increased [Unknown]
  - Nasopharyngitis [Unknown]
  - Sleep terror [Unknown]
  - Anhedonia [Unknown]
  - Depressed mood [Unknown]
